FAERS Safety Report 9638821 (Version 1)
Quarter: 2013Q4

REPORT INFORMATION
  Report Type: Spontaneous
  Country: US (occurrence: US)
  Receive Date: 20131022
  Receipt Date: 20131022
  Transmission Date: 20140711
  Serious: No
  Sender: FDA-Public Use
  Company Number: US-BRISTOL-MYERS SQUIBB COMPANY-19163021

PATIENT
  Age: 76 Year
  Sex: Male
  Weight: 98.41 kg

DRUGS (6)
  1. ELIQUIS [Suspect]
     Indication: ATRIAL FIBRILLATION
     Dosage: INCREASED TO 5 MG TWICE DAILY
  2. METFORMIN [Concomitant]
  3. INSULIN [Concomitant]
  4. DIGITALIS [Concomitant]
  5. FLECAINIDE [Concomitant]
  6. DILTIAZEM HCL [Concomitant]

REACTIONS (1)
  - Pruritus [Unknown]
